FAERS Safety Report 24871788 (Version 2)
Quarter: 2025Q1

REPORT INFORMATION
  Report Type: Spontaneous
  Country: JP (occurrence: JP)
  Receive Date: 20250122
  Receipt Date: 20250127
  Transmission Date: 20250408
  Serious: Yes (Hospitalization)
  Sender: ROCHE
  Company Number: JP-ROCHE-10000183742

PATIENT
  Age: 67 Year

DRUGS (1)
  1. XOFLUZA [Suspect]
     Active Substance: BALOXAVIR MARBOXIL
     Indication: Influenza
     Route: 048
     Dates: start: 20250106, end: 20250106

REACTIONS (2)
  - Oxygen saturation decreased [Unknown]
  - Asthma [Unknown]

NARRATIVE: CASE EVENT DATE: 20250106
